FAERS Safety Report 5935135-5 (Version None)
Quarter: 2008Q4

REPORT INFORMATION
  Report Type: 
  Country: None (occurrence: None)
  Receive Date: 20081030
  Receipt Date: 20081021
  Transmission Date: 20090506
  Serious: Yes (Hospitalization)
  Sender: FDA-Public Use
  Company Number: GB-JNJFOC-20081005093

PATIENT
  Age: 45 Year
  Sex: Male

DRUGS (3)
  1. DARUNAVIR [Suspect]
     Indication: DRUG USE FOR UNKNOWN INDICATION
     Route: 048
  2. TRUVADA [Suspect]
     Indication: HIV INFECTION
  3. RITONAVIR [Suspect]
     Indication: DRUG USE FOR UNKNOWN INDICATION

REACTIONS (2)
  - PERICARDIAL EFFUSION [None]
  - RENAL FAILURE ACUTE [None]
